FAERS Safety Report 8048091-3 (Version None)
Quarter: 2012Q1

REPORT INFORMATION
  Report Type: 
  Country: None (occurrence: None)
  Receive Date: 20120112
  Receipt Date: 20120112
  Transmission Date: 20120608
  Serious: Yes (Life-Threatening, Hospitalization, Disabling)
  Sender: FDA-Public Use
  Company Number: None

PATIENT
  Sex: Female
  Weight: 74.8435 kg

DRUGS (2)
  1. LEVAQUIN [Suspect]
     Indication: WOUND
     Dosage: 1 TABLET DAILY
  2. LEVOFLOXACIN [Suspect]

REACTIONS (20)
  - URTICARIA [None]
  - NIGHTMARE [None]
  - EYE DISORDER [None]
  - DRY EYE [None]
  - DIARRHOEA [None]
  - RASH [None]
  - TOOTH LOSS [None]
  - TEETH BRITTLE [None]
  - DIZZINESS [None]
  - FEELING ABNORMAL [None]
  - DRY SKIN [None]
  - VAGINAL HAEMORRHAGE [None]
  - TINNITUS [None]
  - BONE DENSITY DECREASED [None]
  - NAUSEA [None]
  - BREATH ODOUR [None]
  - HAEMATEMESIS [None]
  - HAEMATOCHEZIA [None]
  - MUSCLE SPASMS [None]
  - BONE LOSS [None]
